FAERS Safety Report 18910928 (Version 1)
Quarter: 2021Q1

REPORT INFORMATION
  Report Type: Report from Study
  Country: DE (occurrence: AR)
  Receive Date: 20210218
  Receipt Date: 20210218
  Transmission Date: 20210420
  Serious: Yes (Hospitalization, Other)
  Sender: FDA-Public Use
  Company Number: AR-ELI_LILLY_AND_COMPANY-AR202102007792

PATIENT
  Age: 71 Year
  Sex: Male

DRUGS (1)
  1. CETUXIMAB. [Suspect]
     Active Substance: CETUXIMAB
     Indication: COLORECTAL CANCER
     Dosage: 438 MG, WEEKLY (1/W)
     Route: 065
     Dates: start: 20200629

REACTIONS (2)
  - Decreased appetite [Unknown]
  - Dehydration [Recovering/Resolving]

NARRATIVE: CASE EVENT DATE: 20210201
